FAERS Safety Report 25644107 (Version 3)
Quarter: 2025Q3

REPORT INFORMATION
  Report Type: Spontaneous
  Country: US (occurrence: US)
  Receive Date: 20250805
  Receipt Date: 20250826
  Transmission Date: 20251021
  Serious: No
  Sender: PFIZER
  Company Number: US-PFIZER INC-PV202500078722

PATIENT
  Age: 61 Year
  Sex: Female

DRUGS (1)
  1. TUKYSA [Suspect]
     Active Substance: TUCATINIB
     Dosage: 200 MG, 2X/DAY (150MG 1 TABLET TWICE DAILY AND 50MG 1 TABLET TWICE DAILY)

REACTIONS (2)
  - Memory impairment [Unknown]
  - Intentional product misuse [Unknown]
